FAERS Safety Report 4626354-9 (Version None)
Quarter: 2005Q2

REPORT INFORMATION
  Report Type: 
  Country: None (occurrence: None)
  Receive Date: 20050404
  Receipt Date: 20050311
  Transmission Date: 20051028
  Serious: No
  Sender: FDA-Public Use
  Company Number: JP-GLAXOSMITHKLINE-B0374554A

PATIENT
  Sex: Female
  Weight: 3 kg

DRUGS (5)
  1. PAXIL [Suspect]
     Indication: BORDERLINE PERSONALITY DISORDER
     Dosage: 40MG PER DAY
     Dates: end: 20050101
  2. HIRNAMIN [Suspect]
     Indication: BORDERLINE PERSONALITY DISORDER
     Dosage: 5MG THREE TIMES PER DAY
  3. BENZALIN [Concomitant]
     Indication: BORDERLINE PERSONALITY DISORDER
     Dosage: 10MG PER DAY
  4. LEXOTAN [Concomitant]
     Indication: BORDERLINE PERSONALITY DISORDER
     Dosage: 2MG PER DAY
  5. TETRAMIDE [Concomitant]
     Indication: BORDERLINE PERSONALITY DISORDER
     Dosage: 60MG PER DAY

REACTIONS (2)
  - BRADYKINESIA [None]
  - EATING DISORDER [None]
